FAERS Safety Report 5938411-5 (Version None)
Quarter: 2008Q4

REPORT INFORMATION
  Report Type: 
  Country: None (occurrence: None)
  Receive Date: 20081103
  Receipt Date: 20080930
  Transmission Date: 20090506
  Serious: No
  Sender: FDA-Public Use
  Company Number: GB-PFIZER INC-2007024243

PATIENT
  Age: 72 Year
  Sex: Male
  Weight: 88 kg

DRUGS (6)
  1. HYDROCORTISONE ACETATE [Suspect]
     Route: 048
     Dates: start: 19760701
  2. ACETYLSALICYLIC ACID SRT [Concomitant]
     Dates: start: 20030301
  3. CLOPIDOGREL [Concomitant]
     Dates: start: 20030301
  4. FLUDROCORTISONE ACETATE [Concomitant]
     Dates: start: 19760701
  5. LIPITOR [Concomitant]
     Dates: start: 20030301
  6. RAMIPRIL [Concomitant]

REACTIONS (1)
  - NO ADVERSE EVENT [None]
